FAERS Safety Report 17829754 (Version 1)
Quarter: 2020Q2

REPORT INFORMATION
  Report Type: Spontaneous
  Country: CA (occurrence: CA)
  Receive Date: 20200527
  Receipt Date: 20200527
  Transmission Date: 20200714
  Serious: Yes (Hospitalization, Other)
  Sender: FDA-Public Use
  Company Number: CA-JNJFOC-20200504044

PATIENT
  Age: 28 Year
  Sex: Female
  Weight: 96 kg

DRUGS (10)
  1. DROSPIRENONE [Concomitant]
     Active Substance: DROSPIRENONE
     Route: 065
  2. ETHINYLESTRADIOL [Concomitant]
     Active Substance: ETHINYL ESTRADIOL
     Route: 065
  3. REMICADE [Suspect]
     Active Substance: INFLIXIMAB
     Indication: ANKYLOSING SPONDYLITIS
     Route: 042
     Dates: end: 202001
  4. KETOROLAC TROMETHAMINE. [Concomitant]
     Active Substance: KETOROLAC TROMETHAMINE
     Route: 065
  5. PANTOPRAZOLE SODIUM. [Concomitant]
     Active Substance: PANTOPRAZOLE SODIUM
     Route: 065
  6. CYCLOBENZAPRINE. [Concomitant]
     Active Substance: CYCLOBENZAPRINE
     Route: 065
  7. GABAPENTIN. [Concomitant]
     Active Substance: GABAPENTIN
     Route: 065
  8. VALACICLOVIR HYDROCHLORIDE [Concomitant]
     Active Substance: VALACYCLOVIR HYDROCHLORIDE
     Route: 065
  9. METHADONE HCL [Concomitant]
     Active Substance: METHADONE HYDROCHLORIDE
     Route: 065
  10. TRAZODONE HYDROCHLORIDE. [Concomitant]
     Active Substance: TRAZODONE HYDROCHLORIDE
     Route: 065

REACTIONS (3)
  - Ankylosing spondylitis [Unknown]
  - Vaginal ulceration [Unknown]
  - Hospitalisation [Unknown]
